FAERS Safety Report 7149112-2 (Version None)
Quarter: 2010Q4

REPORT INFORMATION
  Report Type: 
  Country: None (occurrence: None)
  Receive Date: 20101209
  Receipt Date: 20101130
  Transmission Date: 20110411
  Serious: Yes (Hospitalization, Other)
  Sender: FDA-Public Use
  Company Number: US-MERCK-1006USA01601

PATIENT
  Age: 78 Year
  Sex: Female

DRUGS (5)
  1. FOSAMAX [Suspect]
     Indication: OSTEOPOROSIS
     Route: 048
     Dates: start: 19960101, end: 20000101
  2. FOSAMAX [Suspect]
     Route: 048
     Dates: start: 20001101, end: 20081215
  3. ALENDRONATE SODIUM [Suspect]
     Route: 048
     Dates: start: 20080701, end: 20080901
  4. FOSAMAX PLUS D [Suspect]
     Route: 048
  5. CORTICOSTEROIDS (UNSPECIFIED) [Concomitant]
     Route: 065
     Dates: start: 20060101, end: 20060101

REACTIONS (5)
  - BACK DISORDER [None]
  - DENTAL CARIES [None]
  - FEMUR FRACTURE [None]
  - LOW TURNOVER OSTEOPATHY [None]
  - SKIN CANCER [None]
